FAERS Safety Report 22323451 (Version 1)
Quarter: 2023Q2

REPORT INFORMATION
  Report Type: Spontaneous
  Country: US (occurrence: US)
  Receive Date: 20230516
  Receipt Date: 20230516
  Transmission Date: 20230721
  Serious: Yes (Hospitalization)
  Sender: FDA-Public Use
  Company Number: US-GSKCCFUS-Case-01698939_AE-95899

PATIENT

DRUGS (1)
  1. TRELEGY ELLIPTA [Suspect]
     Active Substance: FLUTICASONE FUROATE\UMECLIDINIUM BROMIDE\VILANTEROL TRIFENATATE
     Indication: Product used for unknown indication
     Dosage: 2 DF, BID

REACTIONS (5)
  - Dehydration [Recovered/Resolved]
  - Hyponatraemia [Recovered/Resolved]
  - Throat irritation [Recovered/Resolved]
  - Wrong technique in device usage process [Recovered/Resolved]
  - Prescribed overdose [Recovered/Resolved]
